FAERS Safety Report 5811840-6 (Version None)
Quarter: 2008Q3

REPORT INFORMATION
  Report Type: 
  Country: None (occurrence: None)
  Receive Date: 20080714
  Receipt Date: 20080702
  Transmission Date: 20090109
  Serious: Yes (Other)
  Sender: FDA-Public Use
  Company Number: OMPQ-NO-0807S-0452

PATIENT
  Age: 79 Year
  Sex: Female

DRUGS (3)
  1. OMNIPAQUE 140 [Suspect]
     Indication: CALCULUS URETERIC
     Dosage: 40 ML, SINGLE DOSE, I.V.
     Route: 042
     Dates: start: 20070711, end: 20070711
  2. SHAKUYAKUKANZOUTOU [Concomitant]
  3. LARVAE OF BEES [Concomitant]

REACTIONS (3)
  - ERYTHEMA [None]
  - PYREXIA [None]
  - STREPTOCOCCAL INFECTION [None]
